FAERS Safety Report 10557626 (Version 2)
Quarter: 2014Q4

REPORT INFORMATION
  Report Type: Spontaneous
  Country: US (occurrence: US)
  Receive Date: 20141031
  Receipt Date: 20141031
  Transmission Date: 20150529
  Serious: No
  Sender: FDA-Public Use
  Company Number: US-ELI_LILLY_AND_COMPANY-US201406009099

PATIENT
  Age: 10 Year
  Sex: Male
  Weight: 50.79 kg

DRUGS (1)
  1. STRATTERA [Suspect]
     Active Substance: ATOMOXETINE HYDROCHLORIDE
     Indication: ATTENTION DEFICIT/HYPERACTIVITY DISORDER
     Dosage: UNK, UNKNOWN
     Route: 048
     Dates: start: 20140522

REACTIONS (3)
  - Weight decreased [Unknown]
  - Decreased interest [Unknown]
  - Flat affect [Unknown]

NARRATIVE: CASE EVENT DATE: 20140616
